FAERS Safety Report 6109731-9 (Version None)
Quarter: 2009Q1

REPORT INFORMATION
  Report Type: 
  Country: None (occurrence: None)
  Receive Date: 20090310
  Receipt Date: 20080418
  Transmission Date: 20090719
  Serious: No
  Sender: FDA-Public Use
  Company Number: A0717542A

PATIENT
  Age: 49 Year
  Sex: Female

DRUGS (6)
  1. NICORETTE [Suspect]
  2. NICORETTE [Suspect]
  3. COMMIT [Suspect]
  4. CYMBALTA [Concomitant]
  5. ACIPHEX [Concomitant]
  6. TRAZODONE HCL [Concomitant]

REACTIONS (9)
  - DIZZINESS [None]
  - GLOSSODYNIA [None]
  - HYPERHIDROSIS [None]
  - INTENTIONAL DRUG MISUSE [None]
  - MIGRAINE [None]
  - NAUSEA [None]
  - TONGUE DISORDER [None]
  - TREMOR [None]
  - WITHDRAWAL SYNDROME [None]
